FAERS Safety Report 7621095-8 (Version None)
Quarter: 2011Q3

REPORT INFORMATION
  Report Type: 
  Country: None (occurrence: None)
  Receive Date: 20110719
  Receipt Date: 20100913
  Transmission Date: 20111222
  Serious: No
  Sender: FDA-Public Use
  Company Number: US-KINGPHARMUSA00001-K201001146

PATIENT
  Age: 80 Year
  Sex: Female
  Weight: 58.957 kg

DRUGS (2)
  1. LEVOXYL [Suspect]
     Dosage: 50 MCG, QD
     Route: 048
     Dates: end: 20100901
  2. LEVOXYL [Suspect]
     Indication: HYPOTHYROIDISM
     Dosage: 25 MCG, QD
     Route: 048
     Dates: start: 20090101

REACTIONS (12)
  - SKIN FISSURES [None]
  - PAIN OF SKIN [None]
  - SKIN EXFOLIATION [None]
  - COUGH [None]
  - SKIN HAEMORRHAGE [None]
  - RASH PRURITIC [None]
  - WHEEZING [None]
  - FLUSHING [None]
  - HYPERSENSITIVITY [None]
  - DRY SKIN [None]
  - THYROID FUNCTION TEST ABNORMAL [None]
  - SKIN REACTION [None]
